FAERS Safety Report 5999656-1 (Version None)
Quarter: 2008Q4

REPORT INFORMATION
  Report Type: 
  Country: None (occurrence: None)
  Receive Date: 20081211
  Receipt Date: 20081211
  Transmission Date: 20090506
  Serious: Yes (Hospitalization)
  Sender: FDA-Public Use
  Company Number: None

PATIENT
  Age: 90 Year
  Sex: Female
  Weight: 59.8748 kg

DRUGS (1)
  1. LYRICA [Suspect]
     Indication: NEURALGIA
     Dosage: TWICE DAILEY
     Dates: start: 20080801, end: 20081013

REACTIONS (4)
  - ASTHENIA [None]
  - CONSTIPATION [None]
  - DIZZINESS [None]
  - ILL-DEFINED DISORDER [None]
